FAERS Safety Report 10754480 (Version 2)
Quarter: 2015Q1

REPORT INFORMATION
  Report Type: Spontaneous
  Country: JP (occurrence: JP)
  Receive Date: 20150202
  Receipt Date: 20150227
  Transmission Date: 20150721
  Serious: Yes (Life-Threatening, Hospitalization)
  Sender: FDA-Public Use
  Company Number: JP-BRACCO-008748

PATIENT
  Age: 67 Year
  Sex: Female
  Weight: 70 kg

DRUGS (13)
  1. CINACALCET HYDROCHLORIDE [Concomitant]
     Active Substance: CINACALCET HYDROCHLORIDE
     Dates: start: 20141209
  2. CIPROXAN [Concomitant]
     Active Substance: CIPROFLOXACIN
     Route: 042
     Dates: start: 20150109
  3. HEPARIN SODIUM. [Concomitant]
     Active Substance: HEPARIN SODIUM
     Dates: start: 20150110
  4. IOPAMIRON [Suspect]
     Active Substance: IOPAMIDOL
     Indication: COMPUTERISED TOMOGRAM
     Dosage: 2 ML/SEC
     Route: 042
     Dates: start: 20150120, end: 20150120
  5. PARIET [Concomitant]
     Active Substance: RABEPRAZOLE SODIUM
     Dates: start: 20141209
  6. VITAMINS NOS [Concomitant]
     Active Substance: VITAMINS
     Dates: start: 20141209
  7. METHYLCOBAL [Concomitant]
     Active Substance: METHYLCOBALAMIN
     Dates: start: 20141209
  8. BAYASPIRIN [Concomitant]
     Active Substance: ASPIRIN
     Dates: start: 20141209
  9. WARFARIN [Concomitant]
     Active Substance: WARFARIN
     Dates: start: 20150114
  10. VIVIANT [Concomitant]
     Active Substance: BAZEDOXIFENE
  11. CALCIUM CARBONATE. [Concomitant]
     Active Substance: CALCIUM CARBONATE
     Dates: start: 20141209
  12. SODIUM BICARBONATE. [Concomitant]
     Active Substance: SODIUM BICARBONATE
     Dates: start: 20141209
  13. ONEALFA [Concomitant]
     Active Substance: ALFACALCIDOL
     Dates: start: 20150109

REACTIONS (2)
  - Anaphylactic shock [Recovered/Resolved]
  - Respiratory arrest [Recovered/Resolved]

NARRATIVE: CASE EVENT DATE: 20150120
